FAERS Safety Report 18094366 (Version 2)
Quarter: 2020Q3

REPORT INFORMATION
  Report Type: Spontaneous
  Country: GB (occurrence: GB)
  Receive Date: 20200730
  Receipt Date: 20200907
  Transmission Date: 20201103
  Serious: Yes (Other)
  Sender: FDA-Public Use
  Company Number: NVSC2020GB212659

PATIENT
  Age: 12 Year
  Sex: Male

DRUGS (8)
  1. VINCRISTINE [Suspect]
     Active Substance: VINCRISTINE
     Indication: B-CELL LYMPHOMA
     Dosage: UNK
     Route: 065
  2. HYDROCORTISONE. [Concomitant]
     Active Substance: HYDROCORTISONE
     Indication: B-CELL LYMPHOMA
     Dosage: UNK
     Route: 037
  3. CYCLOPHOSPHAMIDE. [Suspect]
     Active Substance: CYCLOPHOSPHAMIDE
     Indication: B-CELL LYMPHOMA
     Dosage: UNK
     Route: 065
  4. METHOTREXATE. [Concomitant]
     Active Substance: METHOTREXATE
     Indication: B-CELL LYMPHOMA
     Dosage: UNK
     Route: 037
  5. CYTARABINE. [Concomitant]
     Active Substance: CYTARABINE
     Indication: B-CELL LYMPHOMA
     Dosage: UNK
     Route: 037
  6. PREDNISOLONE. [Suspect]
     Active Substance: PREDNISOLONE
     Indication: B-CELL LYMPHOMA
     Dosage: UNK
     Route: 065
  7. DOXORUBICIN [Suspect]
     Active Substance: DOXORUBICIN
     Indication: B-CELL LYMPHOMA
     Dosage: UNK
     Route: 065
  8. RITUXIMAB. [Suspect]
     Active Substance: RITUXIMAB
     Indication: B-CELL LYMPHOMA
     Dosage: UNK
     Route: 065

REACTIONS (4)
  - Neutropenic sepsis [Unknown]
  - Mucosal inflammation [Unknown]
  - Febrile neutropenia [Unknown]
  - Pneumocystis jirovecii pneumonia [Unknown]
